FAERS Safety Report 8436695-5 (Version None)
Quarter: 2012Q2

REPORT INFORMATION
  Report Type: 
  Country: None (occurrence: None)
  Receive Date: 20120323
  Receipt Date: 20110623
  Transmission Date: 20120825
  Serious: Yes (Other)
  Sender: FDA-Public Use
  Company Number: 163-21880-11063335

PATIENT
  Age: 69 Year
  Sex: Female
  Weight: 75.2971 kg

DRUGS (15)
  1. AMITRIPTYLIN (AMITRIPTYLINE HYDROCHLORIDE) (UNKNOWN) [Concomitant]
  2. METOPROLOL TARTRATE [Concomitant]
  3. ARANESP (DARBEPOETIN ALFA) (UNKNOWN) [Concomitant]
  4. VELCADE [Concomitant]
  5. REVLIMID [Suspect]
     Indication: MULTIPLE MYELOMA
     Dosage: 25 MG, 1 IN 1 D, PO 10 MG, 1 IN 1 D, PO 25 MG, DAILY X 14 DAYS, PO
     Route: 048
     Dates: start: 20100501
  6. REVLIMID [Suspect]
     Indication: MULTIPLE MYELOMA
     Dosage: 25 MG, 1 IN 1 D, PO 10 MG, 1 IN 1 D, PO 25 MG, DAILY X 14 DAYS, PO
     Route: 048
     Dates: start: 20090901
  7. REVLIMID [Suspect]
     Indication: MULTIPLE MYELOMA
     Dosage: 25 MG, 1 IN 1 D, PO 10 MG, 1 IN 1 D, PO 25 MG, DAILY X 14 DAYS, PO
     Route: 048
     Dates: start: 20100501
  8. ASPIRIN [Concomitant]
  9. SENNA (SENNA) (UNKNOWN) [Concomitant]
  10. CYCLOPHOSPHAMIDE [Concomitant]
  11. CALCIUM PLUS VITAMIN D (OS-CAL) (TABLETS) [Concomitant]
  12. DULCOLAX [Concomitant]
  13. FUROSEMIDE [Concomitant]
  14. MULTIVITAMINS (MULTIVITAMINS) (TABLETS) [Concomitant]
  15. VITAMIN E (TOCOPHEROL) (UNKNOWN) [Concomitant]

REACTIONS (1)
  - PLATELET COUNT DECREASED [None]
